FAERS Safety Report 8762102 (Version 5)
Quarter: 2012Q4

REPORT INFORMATION
  Report Type: 
  Country: US (occurrence: US)
  Receive Date: 20120830
  Receipt Date: 20121010
  Transmission Date: 20130627
  Serious: Yes (Hospitalization, Other)
  Sender: FDA-Public Use
  Company Number: US-009507513-2012SP024808

PATIENT

DRUGS (2)
  1. NUVARING [Suspect]
     Indication: CONTRACEPTION
     Dosage: UNK
     Route: 067
     Dates: start: 20100217, end: 20100708
  2. HYDROCHLOROTHIAZIDE [Concomitant]
     Dosage: UNK, prn
     Dates: start: 2009

REACTIONS (16)
  - Pulmonary embolism [Unknown]
  - Papilloma viral infection [Unknown]
  - Rubber sensitivity [Unknown]
  - International normalised ratio decreased [Recovered/Resolved]
  - Pleurisy [Recovering/Resolving]
  - Dysmenorrhoea [Unknown]
  - Pneumonia [Unknown]
  - Upper respiratory tract infection [Unknown]
  - Arthralgia [Unknown]
  - Treatment noncompliance [Unknown]
  - Diabetes mellitus [Unknown]
  - Blood cholesterol increased [Unknown]
  - Hypertension [Unknown]
  - Pain [Unknown]
  - Chest pain [Unknown]
  - Anticoagulation drug level below therapeutic [Unknown]
